FAERS Safety Report 9655091 (Version 2)
Quarter: 2013Q4

REPORT INFORMATION
  Report Type: Spontaneous
  Country: US (occurrence: US)
  Receive Date: 20131029
  Receipt Date: 20131029
  Transmission Date: 20140711
  Serious: No
  Sender: FDA-Public Use
  Company Number: US-PURDUE-USA-2012-0093385

PATIENT
  Age: 31 Year
  Sex: Female

DRUGS (6)
  1. OXYCONTIN (NDA 22-272) [Suspect]
     Indication: SCAPHOCEPHALY
     Dosage: 60 MG, BID
     Route: 048
     Dates: start: 2008
  2. OXYCONTIN (NDA 22-272) [Suspect]
     Indication: BACK PAIN
  3. OXYCONTIN (NDA 22-272) [Suspect]
     Indication: PAIN IN EXTREMITY
  4. NORCO [Concomitant]
     Indication: BREAKTHROUGH PAIN
     Dosage: 2 TABLET, TID (HAS TAKEN FOR 5 YEARS INTERMITTENTLY WITH LORATAB)
     Route: 048
     Dates: start: 2007
  5. PHENTERMINE [Concomitant]
     Indication: WEIGHT DECREASED
     Dosage: 37.5 MG, DAILY
     Route: 048
  6. LORTAB                             /00607101/ [Concomitant]
     Indication: BREAKTHROUGH PAIN
     Dosage: 1 TABLET, TID (HAS TAKEN FOR 5 YEARS INTERMITTENTLY WITH NORCO)
     Dates: start: 2007, end: 201208

REACTIONS (5)
  - Irritable bowel syndrome [Not Recovered/Not Resolved]
  - Medication residue present [Not Recovered/Not Resolved]
  - Constipation [Not Recovered/Not Resolved]
  - Inadequate analgesia [Not Recovered/Not Resolved]
  - Drug effect decreased [Not Recovered/Not Resolved]
